FAERS Safety Report 6294972-0 (Version None)
Quarter: 2009Q3

REPORT INFORMATION
  Report Type: 
  Country: None (occurrence: None)
  Receive Date: 20090803
  Receipt Date: 20090729
  Transmission Date: 20100115
  Serious: Yes (Hospitalization, Disabling)
  Sender: FDA-Public Use
  Company Number: BR-BAYER-200913733LA

PATIENT
  Age: 60 Year
  Sex: Female

DRUGS (4)
  1. BETAFERON [Suspect]
     Indication: RELAPSING-REMITTING MULTIPLE SCLEROSIS
     Route: 058
     Dates: start: 20020101, end: 20070101
  2. MITOXANTRONE [Concomitant]
     Indication: DRUG USE FOR UNKNOWN INDICATION
     Route: 042
     Dates: start: 20070101, end: 20090201
  3. LIORESAL [Concomitant]
     Indication: MULTIPLE SCLEROSIS
     Route: 048
     Dates: start: 19930101
  4. TEGRETOL [Concomitant]
     Indication: MUSCLE SPASMS
     Route: 048
     Dates: start: 20070101

REACTIONS (9)
  - DECUBITUS ULCER [None]
  - DIABETES MELLITUS [None]
  - HYPOKINESIA [None]
  - INJECTION SITE PAIN [None]
  - INJECTION SITE SCAR [None]
  - MOBILITY DECREASED [None]
  - MULTIPLE SCLEROSIS RELAPSE [None]
  - MUSCLE SPASMS [None]
  - VISUAL IMPAIRMENT [None]
